FAERS Safety Report 7127879-7 (Version None)
Quarter: 2010Q4

REPORT INFORMATION
  Report Type: 
  Country: None (occurrence: None)
  Receive Date: 20101130
  Receipt Date: 20101122
  Transmission Date: 20110411
  Serious: Yes (Death)
  Sender: FDA-Public Use
  Company Number: VE-PFIZER INC-2010143237

PATIENT
  Age: 77 Year
  Sex: Female

DRUGS (4)
  1. LIPITOR [Suspect]
     Indication: HYPERCHOLESTEROLAEMIA
     Dosage: 20 MG, 2X/DAY
     Route: 048
     Dates: start: 20071101
  2. PLAVIX [Concomitant]
     Dosage: 75 MG, 2X/DAY
     Route: 048
  3. CORASPIN [Concomitant]
     Dosage: 1 UNK, 1X/DAY
     Route: 048
  4. INSULIN [Concomitant]
     Dosage: 1 UNK, 2X/DAY
     Route: 058

REACTIONS (2)
  - LOCALISED INFECTION [None]
  - RESPIRATORY ARREST [None]
